FAERS Safety Report 5253316-3 (Version None)
Quarter: 2007Q1

REPORT INFORMATION
  Report Type: 
  Country: None (occurrence: None)
  Receive Date: 20070301
  Receipt Date: 20070216
  Transmission Date: 20070707
  Serious: Yes (Hospitalization)
  Sender: FDA-Public Use
  Company Number: PHBS2007CH02946

PATIENT

DRUGS (4)
  1. CLOZAPINE [Suspect]
     Indication: DELUSIONAL DISORDER, PERSECUTORY TYPE
     Dosage: 100 MG/DAY
     Dates: start: 20060801, end: 20060824
  2. TEMESTA [Suspect]
     Dosage: 5 MG/DAY
     Dates: end: 20060824
  3. CHLORAZIN [Suspect]
     Dosage: 100 MG/DAY
     Dates: end: 20060824
  4. NORVASC [Concomitant]
     Indication: HYPERTENSION
     Dosage: 5 MG/DAY

REACTIONS (4)
  - ASTHENIA [None]
  - DRUG TOXICITY [None]
  - ELECTROENCEPHALOGRAM ABNORMAL [None]
  - SOMNOLENCE [None]
